FAERS Safety Report 9523212 (Version 1)
Quarter: 2013Q1

REPORT INFORMATION
  Report Type: Spontaneous
  Country: US (occurrence: None)
  Receive Date: 20130305
  Receipt Date: 20130305
  Transmission Date: 20140127
  Serious: Yes (Hospitalization)
  Sender: FDA-Public Use
  Company Number: 163-21880-12070235

PATIENT
  Age: 89 Year
  Sex: Male

DRUGS (9)
  1. REVLIMID (LENALIDOMIDE) (CAPSULES) [Suspect]
     Indication: MYELODYSPLASTIC SYNDROME
     Dosage: 10 MG, X 28 DAYS, PO
     Route: 048
     Dates: start: 20111101
  2. PERCOCET (OXYCOCET) (UNKNOWN) [Concomitant]
  3. POTASSIUM CHLORIDE (POTASSIUM CHLORIDE) (UNKNOWN) [Concomitant]
  4. LOMOTIL (LOMOTIL) (UNKNOWN) [Concomitant]
  5. IRON [Concomitant]
  6. BUDESONIDE (BUDESONIDE) (UNKNOWN) [Concomitant]
  7. LEXAPRO (ESCITALOPRAM OXALATE) (UNKNOWN) [Concomitant]
  8. LACTINEX (LACTINEX) (UNKNOWN) [Concomitant]
  9. LANTUS (INSULIN GLARGINE) (UNKNOWN) [Concomitant]

REACTIONS (4)
  - Diarrhoea [None]
  - Vomiting [None]
  - Dehydration [None]
  - Hypotension [None]
